FAERS Safety Report 5864003-2 (Version None)
Quarter: 2008Q3

REPORT INFORMATION
  Report Type: 
  Country: None (occurrence: None)
  Receive Date: 20080829
  Receipt Date: 20080826
  Transmission Date: 20090109
  Serious: Yes (Other)
  Sender: FDA-Public Use
  Company Number: US-BAYER-200822512NA

PATIENT
  Age: 40 Year
  Sex: Female
  Weight: 57 kg

DRUGS (6)
  1. CLIMARA [Suspect]
     Indication: HORMONE REPLACEMENT THERAPY
     Route: 061
     Dates: start: 20080710
  2. CLIMARA [Suspect]
     Route: 061
     Dates: start: 20080527, end: 20080710
  3. CLIMARA [Suspect]
     Route: 061
     Dates: start: 20080517, end: 20080527
  4. CLIMARA [Suspect]
     Route: 061
     Dates: start: 20080415, end: 20080501
  5. LUNESTA [Suspect]
     Indication: SLEEP DISORDER
     Route: 048
     Dates: start: 20080201
  6. DILAUDID [Suspect]
     Indication: PROCEDURAL PAIN
     Dates: start: 20080415, end: 20080418

REACTIONS (3)
  - AMNESIA [None]
  - FEELING ABNORMAL [None]
  - FEELING DRUNK [None]
